FAERS Safety Report 7496039-2 (Version None)
Quarter: 2011Q2

REPORT INFORMATION
  Report Type: 
  Country: None (occurrence: None)
  Receive Date: 20110513
  Receipt Date: 20110507
  Transmission Date: 20111010
  Serious: Yes (Hospitalization, Other)
  Sender: FDA-Public Use
  Company Number: 2011001934

PATIENT
  Age: 76 Year
  Sex: Male
  Weight: 79.4 kg

DRUGS (2)
  1. GDC-449 [Suspect]
     Indication: ADENOCARCINOMA PANCREAS
     Dosage: 150 MG, QD, ORAL
     Route: 048
     Dates: start: 20110207, end: 20110404
  2. ERLOTINIB HYDROCHLORIDE [Suspect]
     Indication: ADENOCARCINOMA PANCREAS
     Dosage: 150 MG, QD, ORAL
     Route: 048
     Dates: start: 20110207, end: 20110419

REACTIONS (13)
  - PULMONARY EMBOLISM [None]
  - ASPARTATE AMINOTRANSFERASE INCREASED [None]
  - PANCREATIC CARCINOMA METASTATIC [None]
  - ANXIETY [None]
  - NEOPLASM PROGRESSION [None]
  - ALANINE AMINOTRANSFERASE INCREASED [None]
  - BILE DUCT OBSTRUCTION [None]
  - CANCER PAIN [None]
  - ILEUS [None]
  - BLOOD BILIRUBIN INCREASED [None]
  - BLOOD ALKALINE PHOSPHATASE INCREASED [None]
  - PANCREATITIS [None]
  - HYPOPHAGIA [None]
